FAERS Safety Report 4493397-8 (Version None)
Quarter: 2004Q4

REPORT INFORMATION
  Report Type: 
  Country: None (occurrence: None)
  Receive Date: 20041102
  Receipt Date: 20041028
  Transmission Date: 20050328
  Serious: Yes (Death, Hospitalization)
  Sender: FDA-Public Use
  Company Number: A0501111A

PATIENT
  Age: 41 Year
  Sex: Female
  Weight: 49.8957 kg

DRUGS (7)
  1. IMITREX [Suspect]
     Indication: MIGRAINE
     Dosage: 50 MG  / AS REQUIRED / ORAL
     Route: 048
     Dates: start: 20021001
  2. EXCEDRIN (MIGRAINE) [Suspect]
     Indication: MIGRAINE
     Dosage: AS REQUIRED
  3. IBUPROFEN [Concomitant]
  4. ASPIRIN [Concomitant]
  5. BUDESONIDE [Concomitant]
  6. ORTHO CYCLEN-28 [Concomitant]
  7. OXYMETAZOLINE HCL [Concomitant]

REACTIONS (25)
  - APHASIA [None]
  - APRAXIA [None]
  - AREFLEXIA [None]
  - BLOOD BICARBONATE INCREASED [None]
  - BLOOD PH DECREASED [None]
  - BLOOD PRESSURE SYSTOLIC INCREASED [None]
  - BRAIN DAMAGE [None]
  - BRAIN DEATH [None]
  - BRAIN HERNIATION [None]
  - CAROTID ARTERY DISEASE [None]
  - CEREBRAL ARTERY THROMBOSIS [None]
  - CEREBROVASCULAR ACCIDENT [None]
  - CIRCULATORY COLLAPSE [None]
  - COMA [None]
  - DEPRESSED LEVEL OF CONSCIOUSNESS [None]
  - DISORIENTATION [None]
  - DYSARTHRIA [None]
  - DYSPHAGIA [None]
  - HAEMODYNAMIC INSTABILITY [None]
  - HYPOTONIA [None]
  - ISCHAEMIC STROKE [None]
  - PCO2 INCREASED [None]
  - PO2 INCREASED [None]
  - PUPIL FIXED [None]
  - RESPIRATORY RATE INCREASED [None]
